FAERS Safety Report 5742861-X (Version None)
Quarter: 2008Q2

REPORT INFORMATION
  Report Type: 
  Country: None (occurrence: None)
  Receive Date: 20080515
  Receipt Date: 20080515
  Transmission Date: 20081010
  Serious: No
  Sender: FDA-Public Use
  Company Number: None

PATIENT
  Age: 60 Year
  Sex: Female
  Weight: 104.3273 kg

DRUGS (2)
  1. CREST PRO HEALTH, RINSE 0.07% PROCTER + GAMBLE [Suspect]
     Indication: DENTAL DISORDER PROPHYLAXIS
     Dosage: 20 ML TWICE DAILY PO
     Route: 048
     Dates: start: 20070101, end: 20080429
  2. CREST PRO HEALTH, RINSE 0.07% PROCTER + GAMBLE [Suspect]
     Indication: ORAL SURGERY
     Dosage: 20 ML TWICE DAILY PO
     Route: 048
     Dates: start: 20070101, end: 20080429

REACTIONS (2)
  - PHARMACEUTICAL PRODUCT COMPLAINT [None]
  - TOOTH DISCOLOURATION [None]
